FAERS Safety Report 12831527 (Version 1)
Quarter: 2016Q4

REPORT INFORMATION
  Report Type: Spontaneous
  Country: VE (occurrence: VE)
  Receive Date: 20161009
  Receipt Date: 20161009
  Transmission Date: 20170207
  Serious: Yes (Hospitalization)
  Sender: FDA-Public Use
  Company Number: PHHY2016VE137573

PATIENT
  Sex: Female

DRUGS (3)
  1. DAFLON [Concomitant]
     Active Substance: DIOSMIN\HESPERIDIN
     Indication: CARDIOVASCULAR DISORDER
     Dosage: 500 MG, QD
     Route: 065
  2. TEGRETOL [Suspect]
     Active Substance: CARBAMAZEPINE
     Indication: TRIGEMINAL NERVE DISORDER
     Dosage: 200 MG, QD
     Route: 048
  3. CARBAMAZEPINE. [Suspect]
     Active Substance: CARBAMAZEPINE
     Indication: TRIGEMINAL NERVE DISORDER
     Dosage: 2 DF, QD
     Route: 065

REACTIONS (4)
  - Bronchial disorder [Recovering/Resolving]
  - Product use issue [Unknown]
  - Abdominal discomfort [Recovering/Resolving]
  - Bronchitis [Recovering/Resolving]
